FAERS Safety Report 7570002-5 (Version None)
Quarter: 2011Q2

REPORT INFORMATION
  Report Type: 
  Country: None (occurrence: None)
  Receive Date: 20110624
  Receipt Date: 20110616
  Transmission Date: 20111010
  Serious: Yes (Hospitalization)
  Sender: FDA-Public Use
  Company Number: JP-ASTELLAS-2011JP003491

PATIENT
  Sex: Female
  Weight: 37.5 kg

DRUGS (9)
  1. NICORANDIS [Concomitant]
     Indication: ANGINA PECTORIS
     Dosage: 5 MG, TID
     Route: 065
     Dates: start: 20110418
  2. FERROSTEC TAIYO [Concomitant]
     Indication: IRON DEFICIENCY ANAEMIA
     Dosage: 50 MG, UID/QD
     Route: 065
     Dates: start: 20110418, end: 20110428
  3. ISOSORBIDE DINITRATE [Concomitant]
     Indication: ANGINA PECTORIS
     Dosage: 20 MG, BID
     Route: 065
     Dates: start: 20110418
  4. VESICARE [Suspect]
     Indication: HYPERTONIC BLADDER
     Dosage: 5 MG, UID/QD
     Route: 048
     Dates: start: 20110124, end: 20110422
  5. TAPIZOL [Concomitant]
     Indication: GASTRIC ULCER
     Dosage: 15 MG, UID/QD
     Route: 065
     Dates: start: 20110418
  6. CANDESARTAN CILEXETIL [Concomitant]
     Indication: HYPERTENSION
     Dosage: 8 MG, UID/QD
     Route: 065
  7. GASMOTIN [Concomitant]
     Indication: CONSTIPATION
     Dosage: 5 MG, TID
     Route: 065
     Dates: start: 20110217
  8. BAZEDOXIFENE ACETATE [Concomitant]
     Indication: OSTEOPOROSIS
     Dosage: 20 MG, UID/QD
     Route: 065
     Dates: start: 20101028
  9. AMLODIPINE [Concomitant]
     Indication: HYPERTENSION
     Dosage: 2.5 MG, UID/QD
     Route: 048
     Dates: start: 20110404

REACTIONS (2)
  - ABDOMINAL DISTENSION [None]
  - INTESTINAL OBSTRUCTION [None]
